FAERS Safety Report 14181991 (Version 2)
Quarter: 2017Q4

REPORT INFORMATION
  Report Type: Report from Study
  Country: CA (occurrence: CA)
  Receive Date: 20171113
  Receipt Date: 20171206
  Transmission Date: 20180321
  Serious: Yes (Other)
  Sender: FDA-Public Use
  Company Number: CA-ROCHE-2018370

PATIENT
  Sex: Male

DRUGS (10)
  1. ATORVASTATIN [Concomitant]
     Active Substance: ATORVASTATIN
  2. HYDROMORPHONE [Concomitant]
     Active Substance: HYDROMORPHONE
  3. ZELBORAF [Suspect]
     Active Substance: VEMURAFENIB
     Indication: METASTATIC MALIGNANT MELANOMA
     Dosage: ON HOLD
     Route: 048
     Dates: start: 20170522
  4. RANITIDINE. [Concomitant]
     Active Substance: RANITIDINE
  5. METFORMIN [Concomitant]
     Active Substance: METFORMIN HYDROCHLORIDE
  6. LIPITOR [Concomitant]
     Active Substance: ATORVASTATIN CALCIUM
  7. COVERSYL [Concomitant]
     Active Substance: PERINDOPRIL
  8. METAZAPINE (UNK INGREDIENTS) [Concomitant]
  9. SENNOKOTT [Concomitant]
  10. COTELLIC [Suspect]
     Active Substance: COBIMETINIB
     Indication: METASTATIC MALIGNANT MELANOMA
     Dosage: ON HOLD
     Route: 048
     Dates: start: 20170522

REACTIONS (2)
  - Nasopharyngitis [Unknown]
  - Haemoglobin decreased [Unknown]
